FAERS Safety Report 8415796-1 (Version None)
Quarter: 2012Q2

REPORT INFORMATION
  Report Type: 
  Country: None (occurrence: None)
  Receive Date: 20120606
  Receipt Date: 20120601
  Transmission Date: 20120825
  Serious: Yes (Life-Threatening, Hospitalization)
  Sender: FDA-Public Use
  Company Number: US-ASTRAZENECA-2012SE33041

PATIENT
  Age: 64 Year
  Sex: Female

DRUGS (3)
  1. STEROIDS [Concomitant]
     Route: 048
  2. SYMBICORT [Suspect]
     Route: 055
  3. MOMETASONE FUROATE [Concomitant]
     Route: 055

REACTIONS (2)
  - ASTHMA [None]
  - APPARENT DEATH [None]
